FAERS Safety Report 16697672 (Version 1)
Quarter: 2019Q4

REPORT INFORMATION
  Report Type: Spontaneous
  Country: US (occurrence: US)
  Receive Date: 20190812
  Receipt Date: 20190812
  Transmission Date: 20200122
  Serious: Yes (Other)
  Sender: FDA-Public Use
  Company Number: None

PATIENT
  Age: 61 Year
  Sex: Female
  Weight: 101.7 kg

DRUGS (3)
  1. VENLAFAXINE HYDROCHLORIDE. [Suspect]
     Active Substance: VENLAFAXINE HYDROCHLORIDE
     Indication: DEPRESSION
     Dosage: ?          QUANTITY:180 CAPSULE(S);?
     Route: 048
     Dates: start: 20190811, end: 20190812
  2. VENLAFAXINE HYDROCHLORIDE. [Suspect]
     Active Substance: VENLAFAXINE HYDROCHLORIDE
     Indication: ANXIETY
     Dosage: ?          QUANTITY:180 CAPSULE(S);?
     Route: 048
     Dates: start: 20190811, end: 20190812
  3. TRAZODONE [Concomitant]
     Active Substance: TRAZODONE HYDROCHLORIDE

REACTIONS (12)
  - Tinnitus [None]
  - Hyperhidrosis [None]
  - Oral discomfort [None]
  - Thirst [None]
  - Depression [None]
  - Hypersomnia [None]
  - Product substitution issue [None]
  - Head discomfort [None]
  - Vision blurred [None]
  - Abdominal distension [None]
  - Lacrimation increased [None]
  - Dysgeusia [None]

NARRATIVE: CASE EVENT DATE: 20190811
